FAERS Safety Report 16720466 (Version 2)
Quarter: 2019Q4

REPORT INFORMATION
  Report Type: Spontaneous
  Country: US (occurrence: US)
  Receive Date: 20190820
  Receipt Date: 20191001
  Transmission Date: 20200122
  Serious: Yes (Other)
  Sender: FDA-Public Use
  Company Number: US-AKORN PHARMACEUTICALS-2019AKN01735

PATIENT
  Age: 24 Year
  Sex: Male

DRUGS (1)
  1. MYORISAN [Suspect]
     Active Substance: ISOTRETINOIN
     Dosage: 40 MG, 1X/DAY
     Dates: start: 20190605, end: 2019

REACTIONS (7)
  - Off label use [Recovered/Resolved]
  - Irritability [Unknown]
  - Lip dry [Unknown]
  - Anger [Unknown]
  - Depressive symptom [Unknown]
  - Mood altered [Unknown]
  - Dry skin [Unknown]

NARRATIVE: CASE EVENT DATE: 2019
